FAERS Safety Report 12179199 (Version 2)
Quarter: 2016Q2

REPORT INFORMATION
  Report Type: Spontaneous
  Country: US (occurrence: US)
  Receive Date: 20160315
  Receipt Date: 20160505
  Transmission Date: 20160815
  Serious: Yes (Hospitalization, Other)
  Sender: FDA-Public Use
  Company Number: US-009507513-1603USA006402

PATIENT
  Sex: Male
  Weight: 131.52 kg

DRUGS (2)
  1. METFORMIN [Concomitant]
     Active Substance: METFORMIN HYDROCHLORIDE
     Indication: TYPE 2 DIABETES MELLITUS
     Dosage: 500 MG, BID
     Route: 048
     Dates: start: 20140221
  2. JANUVIA [Suspect]
     Active Substance: SITAGLIPTIN PHOSPHATE
     Indication: TYPE 2 DIABETES MELLITUS
     Dosage: 100 MG, QD
     Route: 048
     Dates: start: 20140221, end: 201512

REACTIONS (18)
  - Metastases to soft tissue [Unknown]
  - Gallbladder disorder [Unknown]
  - Metastases to lymph nodes [Unknown]
  - Gastrointestinal haemorrhage [Unknown]
  - Pancreatic calcification [Unknown]
  - Pancreatic carcinoma metastatic [Unknown]
  - Gastric ulcer [Unknown]
  - Splenic vein thrombosis [Unknown]
  - Pancreatitis [Unknown]
  - Chest pain [Unknown]
  - Dysphagia [Unknown]
  - Radiotherapy [Unknown]
  - Hypertension [Unknown]
  - Dyspepsia [Unknown]
  - Gastritis [Unknown]
  - Pulmonary mass [Unknown]
  - Renal cyst [Unknown]
  - Hyperlipidaemia [Unknown]

NARRATIVE: CASE EVENT DATE: 2015
